FAERS Safety Report 10498133 (Version 1)
Quarter: 2014Q4

REPORT INFORMATION
  Report Type: Spontaneous
  Country: US (occurrence: None)
  Receive Date: 20141002
  Receipt Date: 20141002
  Transmission Date: 20150528
  Serious: Yes (Death)
  Sender: FDA-Public Use
  Company Number: 2545662

PATIENT
  Age: 47 Year
  Sex: Female

DRUGS (1)
  1. PACLITAXEL. [Suspect]
     Active Substance: PACLITAXEL
     Indication: BREAST CANCER
     Route: 041

REACTIONS (6)
  - Ventricular fibrillation [None]
  - Electrocardiogram ST segment depression [None]
  - Vasospasm [None]
  - Electrocardiogram ST segment elevation [None]
  - Acute myocardial infarction [None]
  - Chest pain [None]
